FAERS Safety Report 7369408-9 (Version None)
Quarter: 2011Q1

REPORT INFORMATION
  Report Type: 
  Country: None (occurrence: None)
  Receive Date: 20110323
  Receipt Date: 20110314
  Transmission Date: 20110831
  Serious: No
  Sender: FDA-Public Use
  Company Number: CH-JNJFOC-20110303979

PATIENT
  Sex: Female

DRUGS (2)
  1. SIMPONI [Suspect]
     Indication: PSORIATIC ARTHROPATHY
     Route: 058
  2. OLFEN [Concomitant]

REACTIONS (4)
  - RASH [None]
  - PRURITUS [None]
  - URTICARIA [None]
  - DERMATITIS ALLERGIC [None]
